FAERS Safety Report 26083113 (Version 1)
Quarter: 2025Q4

REPORT INFORMATION
  Report Type: Spontaneous
  Country: US (occurrence: None)
  Receive Date: 20251124
  Receipt Date: 20251124
  Transmission Date: 20260118
  Serious: Yes (Life-Threatening, Hospitalization)
  Sender: FDA-CTU
  Company Number: None

PATIENT
  Age: 46 Year
  Sex: Female
  Weight: 79.7 kg

DRUGS (4)
  1. BLINATUMOMAB [Suspect]
     Active Substance: BLINATUMOMAB
     Indication: B-cell type acute leukaemia
     Route: 042
     Dates: start: 20250829
  2. HYDROCORTISONE [Concomitant]
     Active Substance: HYDROCORTISONE
  3. CYTARABINE [Concomitant]
     Active Substance: CYTARABINE
  4. METHOTREXATE [Concomitant]
     Active Substance: METHOTREXATE

REACTIONS (6)
  - Cognitive disorder [None]
  - Dysgraphia [None]
  - Somnolence [None]
  - Chills [None]
  - Tremor [None]
  - Immune effector cell-associated neurotoxicity syndrome [None]

NARRATIVE: CASE EVENT DATE: 20250910
